FAERS Safety Report 18586293 (Version 2)
Quarter: 2021Q1

REPORT INFORMATION
  Report Type: Spontaneous
  Country: JP (occurrence: JP)
  Receive Date: 20201207
  Receipt Date: 20210113
  Transmission Date: 20210419
  Serious: Yes (Other)
  Sender: FDA-Public Use
  Company Number: JP-PFIZER INC-2020475637

PATIENT
  Age: 71 Year
  Sex: Male
  Weight: 58.3 kg

DRUGS (6)
  1. PLETAAL [Concomitant]
     Active Substance: CILOSTAZOL
     Dosage: UNK
  2. POTACOL R [Concomitant]
     Active Substance: CALCIUM CHLORIDE\MALTOSE\POTASSIUM CHLORIDE\SODIUM CHLORIDE\SODIUM LACTATE
     Dosage: UNK
  3. BFLUID [Concomitant]
     Active Substance: AMINO ACIDS\DEXTROSE\ELECTROLYTES NOS\VITAMINS
     Dosage: UNK
  4. ANAEMETRO 500MG [Suspect]
     Active Substance: METRONIDAZOLE
     Indication: CLOSTRIDIUM TEST POSITIVE
     Dosage: 500 MG, THREE TIMES A DAY
     Route: 042
     Dates: start: 20201121, end: 20201129
  5. VITAMEDIN [CYANOCOBALAMIN;PYRIDOXINE HYDROCHLORIDE;THIAMINE HYDROCHLOR [Concomitant]
     Dosage: UNK
  6. LIVALO [Concomitant]
     Active Substance: PITAVASTATIN CALCIUM
     Dosage: UNK

REACTIONS (6)
  - Penile ulceration [Unknown]
  - Skin disorder [Recovered/Resolved]
  - Penile swelling [Unknown]
  - Mouth ulceration [Recovering/Resolving]
  - Mouth haemorrhage [Unknown]
  - Peyronie^s disease [Unknown]

NARRATIVE: CASE EVENT DATE: 20201202
